FAERS Safety Report 8792693 (Version 2)
Quarter: 2015Q2

REPORT INFORMATION
  Report Type: Report from Study
  Country: US (occurrence: US)
  Receive Date: 20120918
  Receipt Date: 20150630
  Transmission Date: 20150821
  Serious: Yes (Death)
  Sender: FDA-Public Use
  Company Number: US-ROCHE-1124655

PATIENT
  Sex: Male

DRUGS (25)
  1. AVASTIN [Suspect]
     Active Substance: BEVACIZUMAB
     Indication: MALIGNANT MELANOMA
     Route: 042
     Dates: start: 20071220
  2. AVASTIN [Suspect]
     Active Substance: BEVACIZUMAB
     Route: 042
  3. TAXOL [Suspect]
     Active Substance: PACLITAXEL
     Route: 065
  4. AVASTIN [Suspect]
     Active Substance: BEVACIZUMAB
     Route: 042
  5. AVASTIN [Suspect]
     Active Substance: BEVACIZUMAB
     Route: 042
  6. AVASTIN [Suspect]
     Active Substance: BEVACIZUMAB
     Route: 042
  7. TAXOL [Suspect]
     Active Substance: PACLITAXEL
     Indication: PRODUCT USED FOR UNKNOWN INDICATION
     Route: 065
  8. BENADRYL [Concomitant]
     Active Substance: DIPHENHYDRAMINE HYDROCHLORIDE
     Route: 042
  9. AVASTIN [Suspect]
     Active Substance: BEVACIZUMAB
     Route: 042
  10. DECADRON [Concomitant]
     Active Substance: DEXAMETHASONE
     Route: 042
  11. CARBOPLATIN. [Suspect]
     Active Substance: CARBOPLATIN
     Indication: PRODUCT USED FOR UNKNOWN INDICATION
     Route: 065
  12. LYRICA [Concomitant]
     Active Substance: PREGABALIN
  13. AVASTIN [Suspect]
     Active Substance: BEVACIZUMAB
     Indication: LUNG NEOPLASM MALIGNANT
     Route: 042
  14. TAXOL [Suspect]
     Active Substance: PACLITAXEL
     Route: 065
  15. DILAUDID [Concomitant]
     Active Substance: HYDROMORPHONE HYDROCHLORIDE
  16. LOTREL [Concomitant]
     Active Substance: AMLODIPINE BESYLATE\BENAZEPRIL HYDROCHLORIDE
     Dosage: 10/20 MG
     Route: 048
  17. AVASTIN [Suspect]
     Active Substance: BEVACIZUMAB
     Route: 042
  18. AVASTIN [Suspect]
     Active Substance: BEVACIZUMAB
     Route: 042
  19. ZANTAC [Concomitant]
     Active Substance: RANITIDINE HYDROCHLORIDE
     Route: 042
  20. ZOFRAN [Concomitant]
     Active Substance: ONDANSETRON HYDROCHLORIDE
     Route: 042
  21. AVASTIN [Suspect]
     Active Substance: BEVACIZUMAB
     Route: 042
  22. LOTREL [Concomitant]
     Active Substance: AMLODIPINE BESYLATE\BENAZEPRIL HYDROCHLORIDE
     Dosage: 5/20 MG
     Route: 048
  23. AVASTIN [Suspect]
     Active Substance: BEVACIZUMAB
     Route: 042
  24. AVASTIN [Suspect]
     Active Substance: BEVACIZUMAB
     Route: 042
  25. NEULASTA [Concomitant]
     Active Substance: PEGFILGRASTIM
     Route: 065

REACTIONS (11)
  - Platelet count abnormal [Unknown]
  - Gait disturbance [Unknown]
  - Weight decreased [Unknown]
  - Off label use [Unknown]
  - Death [Fatal]
  - Neuropathy peripheral [Recovering/Resolving]
  - Malignant neoplasm progression [Unknown]
  - Hypertension [Unknown]
  - Abdominal discomfort [Unknown]
  - Pain in extremity [Unknown]
  - Proteinuria [Unknown]
